FAERS Safety Report 9819438 (Version 1)
Quarter: 2014Q1

REPORT INFORMATION
  Report Type: Spontaneous
  Country: FR (occurrence: FR)
  Receive Date: 20140115
  Receipt Date: 20140115
  Transmission Date: 20141002
  Serious: Yes (Other)
  Sender: FDA-Public Use
  Company Number: FR-BRISTOL-MYERS SQUIBB COMPANY-19999788

PATIENT
  Age: 50 Year
  Sex: Male

DRUGS (2)
  1. SUSTIVA CAPS 600 MG [Suspect]
     Route: 048
     Dates: start: 20090615, end: 20130705
  2. TRUVADA [Concomitant]
     Dates: start: 20090615

REACTIONS (3)
  - Sleep disorder [Recovered/Resolved]
  - Anxiety [Recovered/Resolved]
  - Depression [Recovered/Resolved]
